FAERS Safety Report 13185252 (Version 1)
Quarter: 2017Q1

REPORT INFORMATION
  Report Type: Spontaneous
  Country: FR (occurrence: FR)
  Receive Date: 20170203
  Receipt Date: 20170203
  Transmission Date: 20170428
  Serious: Yes (Hospitalization)
  Sender: FDA-Public Use
  Company Number: FR-SA-2017SA015747

PATIENT
  Age: 89 Year
  Sex: Male

DRUGS (4)
  1. PLAVIX [Suspect]
     Active Substance: CLOPIDOGREL BISULFATE
     Route: 048
     Dates: start: 20170109
  2. KARDEGIC [Interacting]
     Active Substance: ASPIRIN LYSINE
     Route: 048
     Dates: start: 20170109
  3. XARELTO [Interacting]
     Active Substance: RIVAROXABAN
     Route: 048
     Dates: start: 20170109, end: 20170110
  4. XARELTO [Interacting]
     Active Substance: RIVAROXABAN
     Route: 048
     Dates: start: 20170119

REACTIONS (2)
  - Haemorrhage [Recovered/Resolved]
  - Vascular pseudoaneurysm [Recovering/Resolving]

NARRATIVE: CASE EVENT DATE: 20170110
